FAERS Safety Report 9434249 (Version 1)
Quarter: 2013Q3

REPORT INFORMATION
  Report Type: Spontaneous
  Country: GB (occurrence: GB)
  Receive Date: 20130801
  Receipt Date: 20130801
  Transmission Date: 20140515
  Serious: Yes (Other)
  Sender: FDA-Public Use
  Company Number: PHFR2013GB004298

PATIENT
  Sex: Male

DRUGS (2)
  1. CLOZARIL [Suspect]
     Indication: SCHIZOPHRENIA
     Dosage: UNK
     Route: 048
     Dates: start: 20130611
  2. CLOZARIL [Suspect]
     Dosage: 300 MG, NOCTE
     Route: 048

REACTIONS (2)
  - Somnambulism [Unknown]
  - Antipsychotic drug level decreased [Unknown]
